FAERS Safety Report 9671854 (Version 2)
Quarter: 2013Q4

REPORT INFORMATION
  Report Type: Spontaneous
  Country: GB (occurrence: GB)
  Receive Date: 20131106
  Receipt Date: 20131112
  Transmission Date: 20140711
  Serious: Yes (Other)
  Sender: FDA-Public Use
  Company Number: GB-009507513-1311GBR001451

PATIENT
  Age: 70 Year
  Sex: Male

DRUGS (4)
  1. JANUVIA [Suspect]
     Route: 048
  2. GLICLAZIDE [Concomitant]
  3. METFORMIN [Concomitant]
  4. INSULIN [Concomitant]

REACTIONS (3)
  - Pancreatic carcinoma [Unknown]
  - Weight decreased [Unknown]
  - Carbohydrate antigen 19-9 increased [Unknown]
